FAERS Safety Report 21274166 (Version 1)
Quarter: 2022Q3

REPORT INFORMATION
  Report Type: Spontaneous
  Country: FR (occurrence: FR)
  Receive Date: 20220831
  Receipt Date: 20220831
  Transmission Date: 20221027
  Serious: Yes (Hospitalization)
  Sender: FDA-Public Use
  Company Number: None

PATIENT
  Age: 82 Year
  Sex: Male
  Weight: 69 kg

DRUGS (16)
  1. FLUCONAZOLE [Suspect]
     Active Substance: FLUCONAZOLE
     Indication: Infection
     Route: 048
     Dates: start: 20220723
  2. GLICLAZIDE [Suspect]
     Active Substance: GLICLAZIDE
     Indication: Type 2 diabetes mellitus
     Route: 048
     Dates: end: 20220808
  3. SITAGLIPTIN [Suspect]
     Active Substance: SITAGLIPTIN
     Indication: Type 2 diabetes mellitus
     Route: 048
     Dates: end: 20220808
  4. METFORMIN HYDROCHLORIDE [Suspect]
     Active Substance: METFORMIN HYDROCHLORIDE
     Indication: Type 2 diabetes mellitus
     Route: 048
  5. TRAMADOL HCL [Suspect]
     Active Substance: TRAMADOL HYDROCHLORIDE
     Indication: Pain
     Dosage: ON REQUEST, MAX 3 DF / DAY OR MAX 150 MG / DAY
     Route: 048
     Dates: start: 20220801
  6. LEVOFLOXACIN [Suspect]
     Active Substance: LEVOFLOXACIN
     Indication: Infection
     Route: 048
     Dates: start: 20220723
  7. MIANSERIN HYDROCHLORIDE [Concomitant]
     Active Substance: MIANSERIN HYDROCHLORIDE
  8. OXAZEPAM [Concomitant]
     Active Substance: OXAZEPAM
  9. RAMIPRIL [Concomitant]
     Active Substance: RAMIPRIL
  10. KARDEGIC [Concomitant]
     Active Substance: ASPIRIN DL-LYSINE
  11. ATENOLOL [Concomitant]
     Active Substance: ATENOLOL
  12. TAMSULOSIN [Concomitant]
     Active Substance: TAMSULOSIN
  13. ACETAMINOPHEN [Concomitant]
     Active Substance: ACETAMINOPHEN
  14. LOVENOX [Concomitant]
     Active Substance: ENOXAPARIN SODIUM
  15. NICORANDIL [Concomitant]
     Active Substance: NICORANDIL
  16. ROSUVASTATIN [Concomitant]
     Active Substance: ROSUVASTATIN

REACTIONS (2)
  - Confusional state [Recovered/Resolved]
  - Hypoglycaemia [Recovered/Resolved]

NARRATIVE: CASE EVENT DATE: 20220807
